FAERS Safety Report 12667221 (Version 1)
Quarter: 2016Q3

REPORT INFORMATION
  Report Type: Spontaneous
  Country: DK (occurrence: DK)
  Receive Date: 20160819
  Receipt Date: 20160819
  Transmission Date: 20161109
  Serious: Yes (Hospitalization)
  Sender: FDA-Public Use
  Company Number: DK-TEVA-683718ACC

PATIENT
  Age: 56 Year
  Sex: Female
  Weight: 67 kg

DRUGS (3)
  1. ATORVASTATIN ^TEVA^ [Suspect]
     Active Substance: ATORVASTATIN
     Indication: HYPERCHOLESTEROLAEMIA
     Dosage: 20 MILLIGRAM DAILY; STRENGTH : 20 MG.
     Route: 048
     Dates: start: 20150107, end: 20150425
  2. CARDIOSTAD [Concomitant]
     Active Substance: LISINOPRIL
     Indication: HYPERTENSION
     Dosage: 5 MILLIGRAM DAILY; STRENGTH : 5 MG.
     Route: 048
     Dates: start: 200411, end: 201508
  3. AMLODIPIN ^SANDOZ^ [Concomitant]
     Indication: HYPERTENSION
     Dosage: 5 MILLIGRAM DAILY; STRENGTH : 10 MG.
     Route: 048
     Dates: start: 200411

REACTIONS (1)
  - Blood potassium decreased [Recovering/Resolving]

NARRATIVE: CASE EVENT DATE: 201504
